FAERS Safety Report 23436575 (Version 1)
Quarter: 2024Q1

REPORT INFORMATION
  Report Type: Spontaneous
  Country: US (occurrence: US)
  Receive Date: 20240124
  Receipt Date: 20240124
  Transmission Date: 20240410
  Serious: No
  Sender: FDA-Public Use
  Company Number: US-STRIDES ARCOLAB LIMITED-2023SP015393

PATIENT
  Age: 42 Year
  Sex: Female

DRUGS (6)
  1. DOXYCYCLINE [Suspect]
     Active Substance: DOXYCYCLINE
     Indication: Alopecia scarring
     Dosage: 40 MILLIGRAM PER DAY
     Route: 048
  2. DOXYCYCLINE [Suspect]
     Active Substance: DOXYCYCLINE
     Dosage: UNK, HIGHER DOSE OF DOXYCYCLINE
     Route: 065
  3. CORTISONE [Concomitant]
     Active Substance: CORTISONE
     Indication: Alopecia scarring
     Dosage: UNK, ONCE A MONTH
     Route: 026
  4. HALCINONIDE [Concomitant]
     Active Substance: HALCINONIDE
     Indication: Alopecia scarring
     Dosage: UNK, AS NEEDED (TOPICAL SOLUTION OF HALCINONIDE TWICE DAILY AS NEEDED)
     Route: 061
  5. MINOXIDIL [Concomitant]
     Active Substance: MINOXIDIL
     Indication: Alopecia scarring
     Dosage: 2.5 MILLIGRAM PER DAY
     Route: 048
  6. TRIAMCINOLONE [Concomitant]
     Active Substance: TRIAMCINOLONE
     Indication: Alopecia scarring
     Dosage: 5 MG/ML, ONCE A MONTH (5 MG/ML OF TRIAMCINOLONE INTRALESIONAL INJECTIONS)
     Route: 026

REACTIONS (2)
  - Gastrointestinal disorder [Unknown]
  - Off label use [Unknown]
